FAERS Safety Report 17192596 (Version 1)
Quarter: 2019Q4

REPORT INFORMATION
  Report Type: Spontaneous
  Country: US (occurrence: US)
  Receive Date: 20191223
  Receipt Date: 20191223
  Transmission Date: 20200122
  Serious: Yes (Hospitalization, Other)
  Sender: FDA-Public Use
  Company Number: US-PFIZER INC-2019549302

PATIENT

DRUGS (1)
  1. SERTRALINE HCL [Suspect]
     Active Substance: SERTRALINE HYDROCHLORIDE
     Dosage: UNK

REACTIONS (7)
  - Near death experience [Unknown]
  - Psychotic disorder [Unknown]
  - Pleural effusion [Unknown]
  - Feeling abnormal [Unknown]
  - Hormone level abnormal [Unknown]
  - Depression [Unknown]
  - Anxiety disorder [Unknown]
